FAERS Safety Report 20560447 (Version 1)
Quarter: 2022Q1

REPORT INFORMATION
  Report Type: Spontaneous
  Country: US (occurrence: None)
  Receive Date: 20220307
  Receipt Date: 20220307
  Transmission Date: 20220424
  Serious: No
  Sender: FDA-Public Use
  Company Number: None

PATIENT
  Age: 19 Year
  Sex: Female

DRUGS (1)
  1. HUMIRA [Suspect]
     Active Substance: ADALIMUMAB
     Dosage: OTHER FREQUENCY : BI-WEEKLY;?
     Route: 058
     Dates: start: 20220113

REACTIONS (1)
  - Psoriasis [None]

NARRATIVE: CASE EVENT DATE: 20220201
